FAERS Safety Report 8264826-9 (Version None)
Quarter: 2012Q2

REPORT INFORMATION
  Report Type: 
  Country: None (occurrence: None)
  Receive Date: 20120406
  Receipt Date: 20120328
  Transmission Date: 20120825
  Serious: Yes (Hospitalization)
  Sender: FDA-Public Use
  Company Number: GB-JNJFOC-20120313433

PATIENT
  Age: 1 Year
  Sex: Male

DRUGS (3)
  1. CALPROFEN [Concomitant]
     Indication: PRODUCT USED FOR UNKNOWN INDICATION
     Route: 065
  2. ACETAMINOPHEN [Suspect]
     Indication: PYREXIA
     Dosage: 5-10 ML OF PARACETAMOL 120MG/5ML UP TO 4 HOURLY SOMETIMES 4-5 TIMES PER DAY
     Route: 048
     Dates: start: 20111221, end: 20111227
  3. ACETAMINOPHEN [Suspect]
     Route: 048

REACTIONS (5)
  - ACUTE HEPATIC FAILURE [None]
  - HYPOGLYCAEMIA [None]
  - HEPATOMEGALY [None]
  - UNRESPONSIVE TO STIMULI [None]
  - OVERDOSE [None]
